FAERS Safety Report 9440795 (Version 2)
Quarter: 2014Q1

REPORT INFORMATION
  Report Type: Spontaneous
  Country: FR (occurrence: FR)
  Receive Date: 20130805
  Receipt Date: 20140113
  Transmission Date: 20141002
  Serious: Yes (Hospitalization)
  Sender: FDA-Public Use
  Company Number: FR-SANOFI-AVENTIS-2013SA076493

PATIENT
  Age: 74 Year
  Sex: Female

DRUGS (10)
  1. OFLOCET [Suspect]
     Indication: SUPERINFECTION
     Route: 065
     Dates: start: 20130616, end: 20130715
  2. LOVENOX [Suspect]
     Indication: PRODUCT USED FOR UNKNOWN INDICATION
     Dosage: LOVENOX (0.4 ML INJSOL)
     Route: 058
     Dates: start: 20130522
  3. AXEPIM [Suspect]
     Indication: SUPERINFECTION
     Dosage: STRENGTH: 2G, POWDER FOR PARENTERAL USE
     Route: 051
     Dates: start: 20130616, end: 20130714
  4. LEVOTHYROX [Concomitant]
     Dosage: STRENGTH: 75 MCG AND 25 MCG
     Route: 048
     Dates: start: 20130528
  5. LOXEN [Concomitant]
     Dosage: PROLONGED RELEASE
     Route: 048
     Dates: start: 20130528
  6. TRIATEC [Concomitant]
     Route: 048
     Dates: start: 20130528
  7. DAFALGAN [Concomitant]
     Dosage: STRENGTH: 500 MG
     Route: 048
     Dates: start: 20130528
  8. ACUPAN [Concomitant]
     Dosage: FREQUENCY: 2 TIMES DAILY IF NEEDED
     Dates: start: 20130528
  9. CONTRAMAL [Concomitant]
     Dosage: FORM: PROLONGED RELEASE
     Route: 048
     Dates: start: 20130528
  10. FOLIC ACID [Concomitant]
     Dates: start: 20130528

REACTIONS (6)
  - Neutropenia [Unknown]
  - Pyrexia [Unknown]
  - Leukopenia [Recovered/Resolved]
  - Agranulocytosis [Recovered/Resolved]
  - Lymphopenia [Recovered/Resolved]
  - Monocyte count decreased [Recovered/Resolved]
